FAERS Safety Report 16267088 (Version 3)
Quarter: 2019Q2

REPORT INFORMATION
  Report Type: Report from Study
  Country: IT (occurrence: IT)
  Receive Date: 20190502
  Receipt Date: 20190529
  Transmission Date: 20190711
  Serious: Yes (Hospitalization)
  Sender: FDA-Public Use
  Company Number: IT-EXELIXIS-XL18419020632

PATIENT
  Age: 49 Year
  Sex: Female
  Weight: 108 kg

DRUGS (10)
  1. BLINDED XL184 [Suspect]
     Active Substance: CABOZANTINIB
     Indication: MEDULLARY THYROID CANCER
     Dosage: 140 OR 60 MG QD
     Route: 048
     Dates: start: 20190329
  2. LOPERAMIDE [Concomitant]
     Active Substance: LOPERAMIDE
  3. BLINDED XL184 [Suspect]
     Active Substance: CABOZANTINIB
     Indication: MEDULLARY THYROID CANCER
     Dosage: 140 OR 60 MG QD
     Route: 048
     Dates: start: 20190329
  4. PANTORC [Concomitant]
     Active Substance: PANTOPRAZOLE SODIUM
  5. CACIT D3 [Concomitant]
     Active Substance: CALCIUM\CHOLECALCIFEROL
  6. BLINDED XL184 [Suspect]
     Active Substance: CABOZANTINIB
     Dosage: UNK
     Route: 048
     Dates: start: 20190430
  7. BLINDED XL184 [Suspect]
     Active Substance: CABOZANTINIB
     Dosage: UNK
     Route: 048
     Dates: start: 20190430
  8. EUTIROX [Concomitant]
     Active Substance: LEVOTHYROXINE SODIUM
  9. SEREUPIN [Concomitant]
     Active Substance: PAROXETINE HYDROCHLORIDE
  10. ROCALTROL [Concomitant]
     Active Substance: CALCITRIOL

REACTIONS (1)
  - Acute kidney injury [Recovered/Resolved]

NARRATIVE: CASE EVENT DATE: 20190421
